FAERS Safety Report 22613928 (Version 1)
Quarter: 2023Q2

REPORT INFORMATION
  Report Type: Other
  Country: JP (occurrence: None)
  Receive Date: 20230619
  Receipt Date: 20230619
  Transmission Date: 20230721
  Serious: Yes (Death)
  Sender: FDA-Public Use
  Company Number: JP-ROCHE-3370705

PATIENT

DRUGS (21)
  1. RITUXIMAB [Suspect]
     Active Substance: RITUXIMAB
     Indication: Microscopic polyangiitis
     Route: 065
  2. RITUXIMAB [Suspect]
     Active Substance: RITUXIMAB
     Indication: Vasculitis
  3. RITUXIMAB [Suspect]
     Active Substance: RITUXIMAB
     Indication: Interstitial lung disease
  4. PIRFENIDONE [Suspect]
     Active Substance: PIRFENIDONE
     Indication: Microscopic polyangiitis
     Route: 065
  5. PIRFENIDONE [Suspect]
     Active Substance: PIRFENIDONE
     Indication: Vasculitis
  6. PIRFENIDONE [Suspect]
     Active Substance: PIRFENIDONE
     Indication: Interstitial lung disease
  7. MIZORIBINE [Suspect]
     Active Substance: MIZORIBINE
     Indication: Microscopic polyangiitis
     Route: 065
  8. MIZORIBINE [Suspect]
     Active Substance: MIZORIBINE
     Indication: Vasculitis
  9. MIZORIBINE [Suspect]
     Active Substance: MIZORIBINE
     Indication: Interstitial lung disease
  10. NINTEDANIB [Suspect]
     Active Substance: NINTEDANIB
     Indication: Microscopic polyangiitis
     Route: 065
  11. NINTEDANIB [Suspect]
     Active Substance: NINTEDANIB
     Indication: Vasculitis
  12. NINTEDANIB [Suspect]
     Active Substance: NINTEDANIB
     Indication: Interstitial lung disease
  13. CYCLOPHOSPHAMIDE [Suspect]
     Active Substance: CYCLOPHOSPHAMIDE
     Indication: Microscopic polyangiitis
     Route: 042
  14. CYCLOPHOSPHAMIDE [Suspect]
     Active Substance: CYCLOPHOSPHAMIDE
     Indication: Vasculitis
  15. CYCLOPHOSPHAMIDE [Suspect]
     Active Substance: CYCLOPHOSPHAMIDE
     Indication: Interstitial lung disease
  16. PREDNISOLONE [Suspect]
     Active Substance: PREDNISOLONE
     Indication: Microscopic polyangiitis
     Route: 065
  17. PREDNISOLONE [Suspect]
     Active Substance: PREDNISOLONE
     Indication: Interstitial lung disease
  18. PREDNISOLONE [Suspect]
     Active Substance: PREDNISOLONE
     Indication: Vasculitis
  19. TACROLIMUS [Suspect]
     Active Substance: TACROLIMUS
     Indication: Microscopic polyangiitis
     Route: 065
  20. TACROLIMUS [Suspect]
     Active Substance: TACROLIMUS
     Indication: Interstitial lung disease
  21. TACROLIMUS [Suspect]
     Active Substance: TACROLIMUS
     Indication: Vasculitis

REACTIONS (7)
  - Infection [Fatal]
  - Interstitial lung disease [Fatal]
  - Neoplasm malignant [Fatal]
  - Pulmonary alveolar haemorrhage [Fatal]
  - Cardiac failure chronic [Fatal]
  - Chronic kidney disease [Fatal]
  - Senile dementia [Fatal]
